FAERS Safety Report 10201916 (Version 4)
Quarter: 2014Q3

REPORT INFORMATION
  Report Type: Spontaneous
  Country: US (occurrence: US)
  Receive Date: 20140528
  Receipt Date: 20140709
  Transmission Date: 20150326
  Serious: No
  Sender: FDA-Public Use
  Company Number: US-PFIZER INC-2014145141

PATIENT
  Age: 54 Year
  Sex: Female
  Weight: 54.42 kg

DRUGS (1)
  1. GEODON [Suspect]
     Active Substance: ZIPRASIDONE HYDROCHLORIDE\ZIPRASIDONE MESYLATE
     Indication: ANXIETY
     Dosage: 80 MG, 2X/DAY
     Dates: start: 2002

REACTIONS (10)
  - Malaise [Unknown]
  - Somnambulism [Unknown]
  - Activities of daily living impaired [Unknown]
  - Anxiety [Unknown]
  - Impaired work ability [Unknown]
  - Diarrhoea [Unknown]
  - Tremor [Unknown]
  - Memory impairment [Unknown]
  - Hypersomnia [Unknown]
  - Drug withdrawal syndrome [Unknown]

NARRATIVE: CASE EVENT DATE: 2013
